FAERS Safety Report 17669736 (Version 1)
Quarter: 2020Q2

REPORT INFORMATION
  Report Type: Spontaneous
  Country: US (occurrence: US)
  Receive Date: 20200415
  Receipt Date: 20200415
  Transmission Date: 20200713
  Serious: Yes (Other)
  Sender: FDA-Public Use
  Company Number: US-ROCHE-2581910

PATIENT
  Age: 49 Year
  Sex: Female
  Weight: 70.55 kg

DRUGS (5)
  1. OCREVUS [Suspect]
     Active Substance: OCRELIZUMAB
     Indication: RELAPSING-REMITTING MULTIPLE SCLEROSIS
     Dosage: SHE RECEIVED HER MOST RECENT TREATMENT ON 20/FEB/2020.
     Route: 042
     Dates: start: 20180816
  2. CBD OIL [Concomitant]
     Active Substance: CANNABIDIOL\HERBALS
     Indication: PAIN
     Route: 065
  3. SOLU-MEDROL [Concomitant]
     Active Substance: METHYLPREDNISOLONE SODIUM SUCCINATE
     Indication: PRODUCT USED FOR UNKNOWN INDICATION
  4. ZYRTEC [Concomitant]
     Active Substance: CETIRIZINE HYDROCHLORIDE
     Indication: PRODUCT USED FOR UNKNOWN INDICATION
     Route: 065
     Dates: start: 20180816, end: 20200220
  5. MODAFINIL. [Concomitant]
     Active Substance: MODAFINIL
     Indication: FATIGUE

REACTIONS (1)
  - Breast cancer [Not Recovered/Not Resolved]

NARRATIVE: CASE EVENT DATE: 20200407
